FAERS Safety Report 13709310 (Version 6)
Quarter: 2017Q4

REPORT INFORMATION
  Report Type: Spontaneous
  Country: US (occurrence: US)
  Receive Date: 20170703
  Receipt Date: 20171023
  Transmission Date: 20180320
  Serious: No
  Sender: FDA-Public Use
  Company Number: PHEH2017US020131

PATIENT
  Sex: Male

DRUGS (1)
  1. TASIGNA [Suspect]
     Active Substance: NILOTINIB
     Indication: PRODUCT USED FOR UNKNOWN INDICATION
     Dosage: BID
     Route: 048

REACTIONS (9)
  - Weight decreased [Unknown]
  - Flushing [Unknown]
  - Alopecia [Unknown]
  - Rash [Unknown]
  - Fatigue [Unknown]
  - Dry skin [Unknown]
  - Dry eye [Unknown]
  - Asthenia [Unknown]
  - Decreased appetite [Unknown]
